FAERS Safety Report 4684451-6 (Version None)
Quarter: 2005Q2

REPORT INFORMATION
  Report Type: 
  Country: None (occurrence: None)
  Receive Date: 20050531
  Receipt Date: 20050315
  Transmission Date: 20051028
  Serious: Yes (Hospitalization, Other)
  Sender: FDA-Public Use
  Company Number: USA040363356

PATIENT
  Age: 35 Year
  Sex: Female
  Weight: 106 kg

DRUGS (12)
  1. ZYPREXA [Suspect]
     Dosage: 10 MG/1 DAY
     Dates: start: 20020507, end: 20030321
  2. DEPAKOTE [Concomitant]
  3. RISPERDAL [Concomitant]
  4. HALDOL (HALOPERIDOL DECANOATE) [Concomitant]
  5. ALBUTEROL [Concomitant]
  6. TRIAMCINOLONE ACETONIDE W/ NYSTATIN [Concomitant]
  7. LITHIUM [Concomitant]
  8. ATIVAN [Concomitant]
  9. BENADRYL [Concomitant]
  10. TRAZADONE [Concomitant]
  11. IBUPROFEN [Concomitant]
  12. ACETAMINOPHEN [Concomitant]

REACTIONS (15)
  - BLOOD CHOLESTEROL ABNORMAL [None]
  - BLOOD TRIGLYCERIDES INCREASED [None]
  - DEPRESSION [None]
  - DIABETES MELLITUS [None]
  - FALL [None]
  - HYPERGLYCAEMIA [None]
  - INSOMNIA [None]
  - LOBAR PNEUMONIA [None]
  - LYMPHADENOPATHY [None]
  - MYALGIA [None]
  - PAIN IN EXTREMITY [None]
  - PHARYNGITIS [None]
  - PNEUMONIA [None]
  - SINUSITIS [None]
  - VERTIGO [None]
